FAERS Safety Report 6369947-3 (Version None)
Quarter: 2009Q3

REPORT INFORMATION
  Report Type: 
  Country: None (occurrence: None)
  Receive Date: 20090923
  Receipt Date: 20081002
  Transmission Date: 20100115
  Serious: Yes (Other)
  Sender: FDA-Public Use
  Company Number: US-ASTRAZENECA-2005UW15770

PATIENT
  Age: 67 Year
  Sex: Female

DRUGS (18)
  1. SEROQUEL [Suspect]
     Indication: ANXIETY
     Route: 048
  2. SEROQUEL [Suspect]
     Indication: INSOMNIA
     Route: 048
  3. SEROQUEL [Suspect]
     Indication: DEPRESSION
     Route: 048
  4. SEROQUEL [Suspect]
     Route: 048
  5. SEROQUEL [Suspect]
     Route: 048
  6. SEROQUEL [Suspect]
     Route: 048
  7. SEROQUEL [Suspect]
     Route: 048
     Dates: start: 20071204
  8. SEROQUEL [Suspect]
     Route: 048
     Dates: start: 20071204
  9. SEROQUEL [Suspect]
     Route: 048
     Dates: start: 20071204
  10. SEROQUEL [Suspect]
     Route: 048
     Dates: start: 20071204, end: 20071215
  11. SEROQUEL [Suspect]
     Route: 048
     Dates: start: 20071204, end: 20071215
  12. SEROQUEL [Suspect]
     Route: 048
     Dates: start: 20071204, end: 20071215
  13. SEROQUEL [Suspect]
     Route: 048
     Dates: start: 20071215
  14. SEROQUEL [Suspect]
     Route: 048
     Dates: start: 20071215
  15. SEROQUEL [Suspect]
     Route: 048
     Dates: start: 20071215
  16. KLONOPIN [Concomitant]
  17. PROTONIX [Concomitant]
     Dates: start: 20070417
  18. TRYPTOPHAN [Concomitant]

REACTIONS (9)
  - CHILLS [None]
  - DYSPEPSIA [None]
  - FATIGUE [None]
  - MUSCLE TWITCHING [None]
  - NIGHTMARE [None]
  - OEDEMA PERIPHERAL [None]
  - SOMNAMBULISM [None]
  - TARDIVE DYSKINESIA [None]
  - TREMOR [None]
